FAERS Safety Report 6170179-2 (Version None)
Quarter: 2009Q2

REPORT INFORMATION
  Report Type: 
  Country: None (occurrence: None)
  Receive Date: 20090428
  Receipt Date: 20090421
  Transmission Date: 20091009
  Serious: Yes (Death, Other)
  Sender: FDA-Public Use
  Company Number: GB-JNJFOC-20090404954

PATIENT
  Age: 51 Year
  Sex: Male
  Weight: 82 kg

DRUGS (12)
  1. REMICADE [Suspect]
     Indication: RHEUMATOID ARTHRITIS
     Route: 042
  2. METHOTREXATE [Concomitant]
  3. PREDNISONE [Concomitant]
  4. AMLODIPINE [Concomitant]
  5. ATENOLOL [Concomitant]
  6. BENORYLATE [Concomitant]
  7. DIDRONEL [Concomitant]
  8. FLUOXETINE HCL [Concomitant]
  9. FOLIC ACID [Concomitant]
  10. INDOMETHACIN [Concomitant]
  11. OMEPRAZOLE [Concomitant]
  12. CYCLOSPORINE [Concomitant]

REACTIONS (3)
  - MULTI-ORGAN FAILURE [None]
  - SEPSIS [None]
  - SKIN ULCER [None]
